FAERS Safety Report 8849183 (Version 3)
Quarter: 2012Q4

REPORT INFORMATION
  Report Type: 
  Country: US (occurrence: US)
  Receive Date: 20121019
  Receipt Date: 20121213
  Transmission Date: 20130627
  Serious: Yes (Other)
  Sender: FDA-Public Use
  Company Number: US-JNJFOC-20121008126

PATIENT
  Age: 72 Year
  Sex: Female
  Weight: 79.38 kg

DRUGS (11)
  1. STELARA [Suspect]
     Indication: PSORIASIS
     Dosage: been on ustekinumab for a year, a total of 11 injections received
     Route: 058
     Dates: start: 20091203
  2. METHOTREXATE [Concomitant]
     Indication: PSORIASIS
     Route: 065
  3. OS.CAL [Concomitant]
     Route: 048
     Dates: start: 200906
  4. VITAMIN D [Concomitant]
     Route: 048
     Dates: start: 200906
  5. FLAX SEED OIL [Concomitant]
     Route: 048
  6. FISH OIL [Concomitant]
     Route: 048
  7. ACTONEL [Concomitant]
     Route: 048
     Dates: start: 20090701
  8. SYNTHROID [Concomitant]
     Route: 048
  9. MICARDIS [Concomitant]
     Route: 048
  10. ASPIRIN [Concomitant]
     Route: 048
  11. LIPITOR [Concomitant]
     Route: 065
     Dates: start: 200909

REACTIONS (2)
  - Immunosuppression [Unknown]
  - Oral herpes [Recovered/Resolved]
